FAERS Safety Report 15319843 (Version 1)
Quarter: 2018Q3

REPORT INFORMATION
  Report Type: Spontaneous
  Country: US (occurrence: US)
  Receive Date: 20180827
  Receipt Date: 20180827
  Transmission Date: 20181010
  Serious: Yes (Life-Threatening, Other)
  Sender: FDA-Public Use
  Company Number: US-ROCHE-2173156

PATIENT
  Age: 48 Year
  Sex: Female
  Weight: 147.55 kg

DRUGS (4)
  1. OCREVUS [Suspect]
     Active Substance: OCRELIZUMAB
     Indication: MULTIPLE SCLEROSIS
     Route: 065
     Dates: start: 20171102
  2. ZYRTEC [Concomitant]
     Active Substance: CETIRIZINE HYDROCHLORIDE
     Indication: HYPERSENSITIVITY
     Dosage: ONGOING:YES
     Route: 065
  3. DRONABINOL. [Concomitant]
     Active Substance: DRONABINOL
     Indication: NEURALGIA
     Dosage: YES
     Route: 065
  4. ZYRTEC [Concomitant]
     Active Substance: CETIRIZINE HYDROCHLORIDE
     Indication: URTICARIA

REACTIONS (11)
  - Influenza like illness [Recovered/Resolved]
  - Urinary tract infection [Unknown]
  - Pain in extremity [Recovered/Resolved]
  - Headache [Recovered/Resolved]
  - Lacrimation increased [Recovered/Resolved]
  - Rhinorrhoea [Recovered/Resolved]
  - Nasal disorder [Recovered/Resolved]
  - Blood uric acid increased [Unknown]
  - Throat irritation [Recovered/Resolved]
  - Feeling abnormal [Recovered/Resolved]
  - Pain [Not Recovered/Not Resolved]

NARRATIVE: CASE EVENT DATE: 201807
